FAERS Safety Report 7242736-3 (Version None)
Quarter: 2011Q1

REPORT INFORMATION
  Report Type: 
  Country: None (occurrence: None)
  Receive Date: 20110125
  Receipt Date: 20110114
  Transmission Date: 20110831
  Serious: Yes (Other)
  Sender: FDA-Public Use
  Company Number: US-EISAI INC-E3810-04386-SPO-US

PATIENT
  Sex: Male

DRUGS (1)
  1. ACIPHEX [Suspect]
     Route: 048

REACTIONS (1)
  - LUNG NEOPLASM MALIGNANT [None]
